FAERS Safety Report 12309445 (Version 1)
Quarter: 2016Q2

REPORT INFORMATION
  Report Type: Spontaneous
  Country: US (occurrence: US)
  Receive Date: 20160427
  Receipt Date: 20160427
  Transmission Date: 20160815
  Serious: No
  Sender: FDA-Public Use
  Company Number: US-PFIZER INC-2016222822

PATIENT
  Age: 52 Year
  Sex: Female

DRUGS (1)
  1. ESTRING [Suspect]
     Active Substance: ESTRADIOL
     Indication: MENOPAUSAL SYMPTOMS
     Dosage: 0.0075 MG, UNK
     Route: 067

REACTIONS (2)
  - Product quality issue [Unknown]
  - Vulvovaginal discomfort [Not Recovered/Not Resolved]
